FAERS Safety Report 4566541-1 (Version None)
Quarter: 2005Q1

REPORT INFORMATION
  Report Type: 
  Country: None (occurrence: None)
  Receive Date: 20050126
  Receipt Date: 20050126
  Transmission Date: 20050727
  Serious: Yes (Other)
  Sender: FDA-Public Use
  Company Number: None

PATIENT
  Age: 30 Year
  Sex: Female
  Weight: 68.0396 kg

DRUGS (1)
  1. PROZAC [Suspect]
     Indication: DEPRESSION
     Dosage: 10-20 MG PER DAY
     Dates: start: 19900101, end: 20040101

REACTIONS (6)
  - ANXIETY [None]
  - DEPRESSION [None]
  - METABOLIC DISORDER [None]
  - OBESITY [None]
  - WEIGHT FLUCTUATION [None]
  - WEIGHT LOSS POOR [None]
